FAERS Safety Report 10149609 (Version 1)
Quarter: 2014Q2

REPORT INFORMATION
  Report Type: Spontaneous
  Country: US (occurrence: US)
  Receive Date: 20140502
  Receipt Date: 20140502
  Transmission Date: 20141212
  Serious: Yes (Other)
  Sender: FDA-Public Use
  Company Number: US-PFIZER INC-2014118074

PATIENT
  Sex: 0

DRUGS (2)
  1. AMIODARONE HCL [Suspect]
     Dosage: UNK
  2. LEXAPRO [Suspect]
     Dosage: UNK

REACTIONS (1)
  - Electrocardiogram QT prolonged [Unknown]
